FAERS Safety Report 6402783-8 (Version None)
Quarter: 2009Q4

REPORT INFORMATION
  Report Type: 
  Country: None (occurrence: None)
  Receive Date: 20091016
  Receipt Date: 20070314
  Transmission Date: 20100525
  Serious: Yes (Disabling)
  Sender: FDA-Public Use
  Company Number: US-ASTRAZENECA-2006UW07745

PATIENT
  Sex: Male
  Weight: 78 kg

DRUGS (9)
  1. SEROQUEL [Suspect]
     Indication: DEPRESSION
     Dosage: 25-200 MG
     Route: 048
     Dates: start: 20000515
  2. SEROQUEL [Suspect]
     Indication: ANXIETY
     Dosage: 25-200 MG
     Route: 048
     Dates: start: 20000515
  3. SEROQUEL [Suspect]
     Indication: AFFECTIVE DISORDER
     Dosage: 25-200 MG
     Route: 048
     Dates: start: 20000515
  4. COUMADIN [Concomitant]
     Indication: DEEP VEIN THROMBOSIS
     Dosage: 5-7.5 MG
     Route: 048
     Dates: start: 20020923, end: 20060101
  5. LOVENOX [Concomitant]
     Route: 058
     Dates: start: 20020923, end: 20060101
  6. CLONAZEPAM [Concomitant]
     Indication: DEPRESSION
     Dosage: HALF MG IN MORNING AND 1 MG AT ABOUT 10 PM
     Dates: start: 20060201
  7. CLONAZEPAM [Concomitant]
     Indication: ANXIETY
     Dosage: HALF MG IN MORNING AND 1 MG AT ABOUT 10 PM
     Dates: start: 20060201
  8. ATIVAN [Concomitant]
     Indication: DEPRESSION
     Dates: start: 20060201
  9. ATIVAN [Concomitant]
     Indication: ANXIETY
     Dates: start: 20060201

REACTIONS (1)
  - ILL-DEFINED DISORDER [None]
